FAERS Safety Report 19792629 (Version 1)
Quarter: 2021Q3

REPORT INFORMATION
  Report Type: Spontaneous
  Country: KR (occurrence: KR)
  Receive Date: 20210906
  Receipt Date: 20210906
  Transmission Date: 20211014
  Serious: Yes (Other)
  Sender: FDA-Public Use
  Company Number: KR-ASTRAZENECA-2021A706676

PATIENT
  Age: 68 Year
  Sex: Male

DRUGS (1)
  1. IMFINZI [Suspect]
     Active Substance: DURVALUMAB
     Route: 042
     Dates: start: 20200601

REACTIONS (5)
  - Malignant neoplasm progression [Unknown]
  - Pleural effusion [Unknown]
  - Pneumonia [Unknown]
  - Radiation pneumonitis [Unknown]
  - Pericardial fibrosis [Unknown]

NARRATIVE: CASE EVENT DATE: 20210314
